FAERS Safety Report 4409721-8 (Version None)
Quarter: 2004Q3

REPORT INFORMATION
  Report Type: 
  Country: None (occurrence: None)
  Receive Date: 20040723
  Receipt Date: 20030630
  Transmission Date: 20050211
  Serious: Yes (Hospitalization)
  Sender: FDA-Public Use
  Company Number: US-JNJFOC-20040603919

PATIENT
  Age: 80 Year
  Sex: Female

DRUGS (5)
  1. TYLENOL [Suspect]
     Indication: ARTHRITIS
     Dosage: 650 MG, 1 IN 1 DAY, ORAL
     Route: 048
     Dates: start: 20021112, end: 20021113
  2. COUMADIN [Concomitant]
  3. AMARYL [Concomitant]
  4. HYZAAR [Concomitant]
  5. GLUCOPHAGE [Concomitant]

REACTIONS (2)
  - HEADACHE [None]
  - OEDEMA PERIPHERAL [None]
